FAERS Safety Report 18430634 (Version 2)
Quarter: 2020Q4

REPORT INFORMATION
  Report Type: Spontaneous
  Country: US (occurrence: US)
  Receive Date: 20201027
  Receipt Date: 20201125
  Transmission Date: 20210114
  Serious: Yes (Other)
  Sender: FDA-Public Use
  Company Number: US-TEVA-2020-US-1841495

PATIENT
  Age: 68 Year
  Sex: Male

DRUGS (19)
  1. SENOKOT [Concomitant]
     Active Substance: SENNOSIDES
     Dosage: ONCE DAILY AS NEEDED
     Dates: start: 20190612, end: 20190613
  2. VOLTAREN [Suspect]
     Active Substance: DICLOFENAC SODIUM
     Indication: ARTHRALGIA
     Dosage: DOSAGE: 1 TABLET TWICE DAILY AS NEEDED.
     Route: 048
     Dates: end: 20190610
  3. ZOLPIDEM [Concomitant]
     Active Substance: ZOLPIDEM TARTRATE
     Indication: INSOMNIA
     Dosage: 5MG, TAKE 1 TABLET BY MOUTH AT BEDTIME AS NEEDED
     Route: 048
     Dates: start: 20190612, end: 20190613
  4. SENOKOT [Concomitant]
     Active Substance: SENNOSIDES
     Indication: LAXATIVE SUPPORTIVE CARE
     Dosage: ONCE DAILY AS NEEDED
     Dates: start: 20161205
  5. MIRALAX [Concomitant]
     Active Substance: POLYETHYLENE GLYCOL 3350
     Indication: LAXATIVE SUPPORTIVE CARE
     Dosage: ONCE DAILY AS NEEDED
     Dates: start: 20161205
  6. VALSARTAN/HYDROCHLOROTHIAZIDE QUALITEST PHARMA [Suspect]
     Active Substance: HYDROCHLOROTHIAZIDE\VALSARTAN
     Indication: HYPERTENSION
     Dosage: DOSAGE: 320/12.5MG TABLET DAILY
     Route: 065
     Dates: start: 20140730, end: 20141020
  7. DIOVAN [Suspect]
     Active Substance: VALSARTAN
     Indication: HYPERTENSION
     Route: 048
     Dates: start: 20190612, end: 20190613
  8. CENTRUM [Concomitant]
     Active Substance: VITAMINS
     Indication: HYPOVITAMINOSIS
     Dosage: 2 TABLETS DAILY AS NEEDED
     Dates: start: 2005
  9. ASPIRIN. [Suspect]
     Active Substance: ASPIRIN
     Dosage: 81 MILLIGRAM DAILY;
     Route: 048
     Dates: start: 20171204, end: 20190613
  10. ASPIRIN. [Concomitant]
     Active Substance: ASPIRIN
     Indication: CARDIAC DISORDER
     Dosage: 81 MILLIGRAM DAILY;
     Route: 048
     Dates: start: 20140624
  11. VALSARTAN/HYDROCHLOROTHIAZIDE SOLCO [Suspect]
     Active Substance: HYDROCHLOROTHIAZIDE\VALSARTAN
     Indication: HYPERTENSION
     Dosage: DOSAGE: 320/12.5MG TABLET DAILY
     Route: 065
     Dates: start: 20170610, end: 20171211
  12. ASPIRIN. [Suspect]
     Active Substance: ASPIRIN
     Dosage: 81 MILLIGRAM DAILY;
     Route: 048
     Dates: start: 20141018, end: 20141030
  13. LIPITOR [Concomitant]
     Active Substance: ATORVASTATIN CALCIUM
     Indication: HYPERLIPIDAEMIA
     Dosage: 20 MILLIGRAM DAILY;
     Route: 048
  14. VALSARTAN/HYDROCHLOROTHIAZIDE QUALITEST PHARMA [Suspect]
     Active Substance: HYDROCHLOROTHIAZIDE\VALSARTAN
     Dosage: DOSAGE: 320/12.5MG TABLET DAILY
     Route: 065
     Dates: start: 20171212, end: 20180815
  15. LORAZEPAM. [Concomitant]
     Active Substance: LORAZEPAM
     Indication: INSOMNIA
     Dates: start: 20190625
  16. TENORMIN [Concomitant]
     Active Substance: ATENOLOL
     Indication: HYPERTENSION
     Dosage: 50 MILLIGRAM DAILY;
     Route: 048
  17. VALSARTAN SANDOZ [Suspect]
     Active Substance: VALSARTAN
     Indication: HYPERTENSION
     Dosage: DOSAGE: 320 MG TABLET DAILY
     Route: 065
     Dates: start: 20140725, end: 20140827
  18. VALSARTAN/HYDROCHLOROTHIAZIDE AUROBINDO PHARMA [Suspect]
     Active Substance: HYDROCHLOROTHIAZIDE\VALSARTAN
     Indication: HYPERTENSION
     Dosage: DOSAGE: 320/12.5MG TABLET DAILY
     Route: 065
     Dates: start: 20141018, end: 20170402
  19. ASPIRIN. [Suspect]
     Active Substance: ASPIRIN
     Dosage: 81 MILLIGRAM DAILY;
     Route: 048
     Dates: start: 20140718, end: 20140730

REACTIONS (9)
  - Gastritis [Unknown]
  - Dyspepsia [Unknown]
  - Microcytic anaemia [Unknown]
  - Peptic ulcer [Unknown]
  - Gastric cancer [Unknown]
  - Oesophagitis [Unknown]
  - Hepatic cancer [Unknown]
  - Chest pain [Unknown]
  - Iron deficiency [Unknown]
